FAERS Safety Report 6070409-1 (Version None)
Quarter: 2009Q1

REPORT INFORMATION
  Report Type: 
  Country: None (occurrence: None)
  Receive Date: 20090209
  Receipt Date: 20090129
  Transmission Date: 20090719
  Serious: Yes (Hospitalization)
  Sender: FDA-Public Use
  Company Number: PHHY2009MT03205

PATIENT
  Sex: Female

DRUGS (4)
  1. ACLASTA [Suspect]
     Indication: OSTEOPOROSIS
     Dosage: ONE 5 MG/100 ML INFUSION
     Dates: start: 20090127
  2. AREDIA [Suspect]
     Indication: OSTEOPOROSIS
  3. STEROIDS NOS [Concomitant]
  4. METHOTREXATE [Concomitant]

REACTIONS (5)
  - DEHYDRATION [None]
  - MYALGIA [None]
  - NAUSEA [None]
  - PYREXIA [None]
  - VOMITING [None]
